FAERS Safety Report 19386513 (Version 1)
Quarter: 2021Q2

REPORT INFORMATION
  Report Type: Spontaneous
  Country: US (occurrence: US)
  Receive Date: 20210607
  Receipt Date: 20210607
  Transmission Date: 20210717
  Serious: No
  Sender: FDA-Public Use
  Company Number: None

PATIENT
  Age: 29 Year
  Sex: Male

DRUGS (1)
  1. DIPHENHYDRAMINE. [Suspect]
     Active Substance: DIPHENHYDRAMINE
     Indication: PRODUCT USED FOR UNKNOWN INDICATION
     Route: 048
     Dates: end: 20210510

REACTIONS (7)
  - Intentional overdose [None]
  - Suicide attempt [None]
  - Blood creatinine increased [None]
  - Tachycardia [None]
  - Confusional state [None]
  - Hallucination [None]
  - Suicidal ideation [None]

NARRATIVE: CASE EVENT DATE: 20210510
